FAERS Safety Report 8633178 (Version 2)
Quarter: 2013Q1

REPORT INFORMATION
  Report Type: Report from Study
  Country: US (occurrence: US)
  Receive Date: 20120625
  Receipt Date: 20130205
  Transmission Date: 20140127
  Serious: Yes (Hospitalization)
  Sender: FDA-Public Use
  Company Number: US-ACTELION-A-US2012-66418

PATIENT
  Age: 62 Year
  Sex: Male

DRUGS (6)
  1. VELETRI [Suspect]
     Indication: PULMONARY ARTERIAL HYPERTENSION
     Dosage: 64 NG/KG, PER MIN
     Route: 042
  2. VELETRI [Suspect]
     Dosage: 2 NG/KG, PER MIN
     Route: 042
     Dates: start: 20111227
  3. VELETRI [Suspect]
     Dosage: UNK
  4. TRACLEER [Suspect]
     Indication: PULMONARY ARTERIAL HYPERTENSION
     Dosage: UNK
     Route: 048
     Dates: start: 20110804
  5. PLAVIX [Concomitant]
  6. ASPIRIN ANALGESIC [Concomitant]

REACTIONS (4)
  - Cardiac failure congestive [Recovering/Resolving]
  - Dyspnoea [Recovering/Resolving]
  - Pulmonary oedema [Recovering/Resolving]
  - Condition aggravated [Unknown]
